FAERS Safety Report 6039722-8 (Version None)
Quarter: 2009Q1

REPORT INFORMATION
  Report Type: 
  Country: None (occurrence: None)
  Receive Date: 20090116
  Receipt Date: 20090108
  Transmission Date: 20090719
  Serious: Yes (Other)
  Sender: FDA-Public Use
  Company Number: PHHY2009BE00981

PATIENT
  Age: 74 Year
  Sex: Female

DRUGS (7)
  1. RASILEZ [Suspect]
     Indication: HYPERTENSION
     Dosage: 150 MG DAILY
     Route: 048
     Dates: start: 20080601, end: 20080701
  2. COAPROVEL [Concomitant]
  3. CARVEDILOL [Concomitant]
  4. SERETIDE ^ALLEN + HANBURYS LTD^ [Concomitant]
  5. SPIRIVA [Concomitant]
  6. LEVOTHYROXINE SODIUM [Concomitant]
  7. PRAVASTATIN [Concomitant]

REACTIONS (5)
  - BLOOD CREATININE INCREASED [None]
  - BLOOD UREA INCREASED [None]
  - DYSPNOEA [None]
  - OEDEMA [None]
  - RENAL FAILURE [None]
